FAERS Safety Report 26080826 (Version 2)
Quarter: 2025Q4

REPORT INFORMATION
  Report Type: Report from Study
  Country: US (occurrence: US)
  Receive Date: 20251124
  Receipt Date: 20251126
  Transmission Date: 20260117
  Serious: Yes (Death, Other)
  Sender: JOHNSON AND JOHNSON
  Company Number: US-JNJFOC-20251167943

PATIENT
  Age: 8 Decade
  Sex: Female

DRUGS (12)
  1. SPRAVATO [Suspect]
     Active Substance: ESKETAMINE
     Indication: Depression
     Dosage: ?28 MG, 4 TOTAL DOSES?
     Route: 045
     Dates: start: 20240326, end: 20240403
  2. SPRAVATO [Suspect]
     Active Substance: ESKETAMINE
     Dosage: ?56 MG, 12 TOTAL DOSES?
     Route: 045
     Dates: start: 20240411, end: 20240605
  3. SPRAVATO [Suspect]
     Active Substance: ESKETAMINE
     Dosage: ?84 MG, 17 TOTAL DOSES?
     Route: 045
     Dates: start: 20240612, end: 20250225
  4. SPRAVATO [Suspect]
     Active Substance: ESKETAMINE
     Dosage: ?56 MG, 1 TOTAL DOSES?
     Route: 045
     Dates: start: 20250624, end: 20250624
  5. SPRAVATO [Suspect]
     Active Substance: ESKETAMINE
     Dosage: ?84 MG, 3 TOTAL DOSES?
     Route: 045
     Dates: start: 20250701, end: 20250715
  6. SPRAVATO [Suspect]
     Active Substance: ESKETAMINE
     Dosage: ?56 MG, 1 TOTAL DOSES?
     Route: 045
     Dates: start: 20250723, end: 20250723
  7. SPRAVATO [Suspect]
     Active Substance: ESKETAMINE
     Dosage: ?84 MG, 1 TOTAL DOSES?
     Route: 045
     Dates: start: 20250729, end: 20250729
  8. SPRAVATO [Suspect]
     Active Substance: ESKETAMINE
     Dosage: ?56 MG, 1 TOTAL DOSES?
     Route: 045
     Dates: start: 20250813, end: 20250813
  9. SPRAVATO [Suspect]
     Active Substance: ESKETAMINE
     Dosage: ?84 MG, 1 TOTAL DOSES?
     Route: 045
     Dates: start: 20250909, end: 20250909
  10. SPRAVATO [Suspect]
     Active Substance: ESKETAMINE
     Dosage: ?56 MG, 1 TOTAL DOSES?
     Route: 045
     Dates: start: 20250923, end: 20250923
  11. SPRAVATO [Suspect]
     Active Substance: ESKETAMINE
     Dosage: ?84 MG, 1 TOTAL DOSES?
     Route: 045
     Dates: start: 20251007, end: 20251007
  12. SPRAVATO [Suspect]
     Active Substance: ESKETAMINE
     Dosage: ?56 MG, 2 TOTAL DOSES?
     Route: 045
     Dates: start: 20240319, end: 20240323

REACTIONS (4)
  - Death [Fatal]
  - Fall [Unknown]
  - Fracture [Unknown]
  - Cerebrovascular accident [Unknown]

NARRATIVE: CASE EVENT DATE: 20250701
